FAERS Safety Report 7454588-7 (Version None)
Quarter: 2011Q2

REPORT INFORMATION
  Report Type: 
  Country: None (occurrence: None)
  Receive Date: 20110503
  Receipt Date: 20100614
  Transmission Date: 20111010
  Serious: No
  Sender: FDA-Public Use
  Company Number: US-BAYER-201027155NA

PATIENT
  Age: 45 Year
  Sex: Female

DRUGS (1)
  1. YAZ [Suspect]
     Indication: SKIN DISORDER
     Dosage: UNK
     Route: 048
     Dates: start: 20100101

REACTIONS (1)
  - METRORRHAGIA [None]
